FAERS Safety Report 21205789 (Version 1)
Quarter: 2022Q3

REPORT INFORMATION
  Report Type: Spontaneous
  Country: US (occurrence: US)
  Receive Date: 20220812
  Receipt Date: 20220812
  Transmission Date: 20221027
  Serious: Yes (Other)
  Sender: FDA-Public Use
  Company Number: US-JNJFOC-20220815133

PATIENT

DRUGS (1)
  1. BENADRYL [Suspect]
     Active Substance: DIPHENHYDRAMINE HYDROCHLORIDE
     Indication: Product used for unknown indication
     Dosage: TAKING 24 BENADRYL EVERY DAY FOR MONTHS NOW
     Route: 065

REACTIONS (3)
  - Drug abuse [Unknown]
  - Hallucinations, mixed [Not Recovered/Not Resolved]
  - Respiratory disorder [Not Recovered/Not Resolved]
